FAERS Safety Report 4797268-9 (Version None)
Quarter: 2005Q4

REPORT INFORMATION
  Report Type: 
  Country: None (occurrence: None)
  Receive Date: 20051013
  Receipt Date: 19861008
  Transmission Date: 20060501
  Serious: Yes (Other)
  Sender: FDA-Public Use
  Company Number: US-GLAXOSMITHKLINE-A0200493A

PATIENT
  Sex: Male
  Weight: 77.01 kg

DRUGS (6)
  1. THORAZINE [Suspect]
     Dates: start: 19760401, end: 19860101
  2. THORAZINE [Suspect]
     Dosage: 50MG PER DAY
  3. THORAZINE [Suspect]
     Indication: PARANOIA
     Dosage: 75MG PER DAY
     Route: 048
     Dates: start: 19770401, end: 19811201
  4. BLOOD PRESSURE MEDICATION [Concomitant]
  5. NITROGLYCERIN [Concomitant]
  6. BENADRYL [Concomitant]

REACTIONS (15)
  - AGITATION [None]
  - ANGINA PECTORIS [None]
  - ANXIETY [None]
  - DEPRESSION [None]
  - EMOTIONAL DISORDER [None]
  - EMOTIONAL DISTRESS [None]
  - HEART RATE INCREASED [None]
  - MENTAL DISORDER [None]
  - MENTAL IMPAIRMENT [None]
  - NERVOUSNESS [None]
  - NO ADVERSE EFFECT [None]
  - SOLILOQUY [None]
  - TARDIVE DYSKINESIA [None]
  - THINKING ABNORMAL [None]
  - TREMOR [None]
